FAERS Safety Report 9624635 (Version 1)
Quarter: 2013Q4

REPORT INFORMATION
  Report Type: Spontaneous
  Country: FR (occurrence: FR)
  Receive Date: 20131015
  Receipt Date: 20131015
  Transmission Date: 20140711
  Serious: Yes (Hospitalization)
  Sender: FDA-Public Use
  Company Number: FR-B.I. PHARMACEUTICALS,INC./RIDGEFIELD-2013-FF-02486FF

PATIENT
  Age: 75 Year
  Sex: Male

DRUGS (6)
  1. PRADAXA [Suspect]
     Indication: ATRIAL FIBRILLATION
     Dosage: 220 MG
     Route: 048
     Dates: start: 20121023, end: 20130626
  2. TASIGNA [Suspect]
     Indication: CHRONIC MYELOID LEUKAEMIA
     Dosage: 800 MG
     Route: 048
     Dates: start: 20120301, end: 20120510
  3. TASIGNA [Suspect]
     Dosage: 600 MG
     Route: 048
     Dates: start: 20120510, end: 20130530
  4. LEVOTHYROXINE SODIQUE [Suspect]
     Dosage: 100 MCG
     Route: 048
     Dates: start: 199112
  5. BISOPROLOL [Suspect]
     Indication: ATRIAL FIBRILLATION
     Dosage: 5 MG
     Route: 048
     Dates: start: 20121023
  6. FUROSEMIDE [Suspect]
     Indication: PULMONARY ARTERIAL HYPERTENSION
     Dosage: 20 MG
     Route: 048
     Dates: start: 20121123, end: 20130629

REACTIONS (4)
  - Arterial disorder [Not Recovered/Not Resolved]
  - Atrial fibrillation [Not Recovered/Not Resolved]
  - Arterial thrombosis [Unknown]
  - Renal artery occlusion [Recovered/Resolved with Sequelae]
